FAERS Safety Report 10191888 (Version 1)
Quarter: 2014Q2

REPORT INFORMATION
  Report Type: Spontaneous
  Country: US (occurrence: US)
  Receive Date: 20140523
  Receipt Date: 20140523
  Transmission Date: 20141212
  Serious: Yes (Other)
  Sender: FDA-Public Use
  Company Number: US-GLAXOSMITHKLINE-A1074342A

PATIENT
  Age: 72 Year
  Sex: Female
  Weight: 99.5 kg

DRUGS (15)
  1. ADVAIR [Suspect]
     Indication: ASTHMA
     Dosage: 1PUFF TWICE PER DAY
     Route: 055
  2. BABY ASPIRIN [Suspect]
     Indication: PRODUCT USED FOR UNKNOWN INDICATION
     Dosage: 81MG ALTERNATE DAYS
     Route: 065
  3. DUONEB [Suspect]
     Indication: ASTHMA
     Dosage: 3ML AS REQUIRED
     Route: 055
  4. XARELTO [Suspect]
     Indication: PRODUCT USED FOR UNKNOWN INDICATION
     Route: 065
  5. CLARITIN [Concomitant]
  6. ACID REFLUX MED. [Concomitant]
  7. NIFEDIPINE [Concomitant]
  8. UNSPECIFIED MEDICATION [Concomitant]
  9. CLOPIDOGREL [Concomitant]
  10. SENNA [Concomitant]
  11. DOCUSATE [Concomitant]
  12. LEVOTHYROXINE [Concomitant]
  13. PREDNISONE [Concomitant]
  14. SIMVASTATIN [Concomitant]
  15. VERAPAMIL [Concomitant]

REACTIONS (6)
  - Transient ischaemic attack [Unknown]
  - Dysarthria [Unknown]
  - Migraine [Unknown]
  - Epistaxis [Unknown]
  - Oedema [Unknown]
  - Productive cough [Unknown]
